FAERS Safety Report 17601705 (Version 1)
Quarter: 2020Q1

REPORT INFORMATION
  Report Type: Spontaneous
  Country: HR (occurrence: HR)
  Receive Date: 20200331
  Receipt Date: 20200331
  Transmission Date: 20200409
  Serious: Yes (Death, Hospitalization, Other)
  Sender: FDA-Public Use
  Company Number: HR-GILEAD-2020-0456761

PATIENT
  Age: 68 Year
  Sex: Female

DRUGS (8)
  1. RIBAVIRIN. [Suspect]
     Active Substance: RIBAVIRIN
     Indication: PRODUCT USED FOR UNKNOWN INDICATION
     Dosage: 400 MG
     Route: 065
     Dates: start: 20200312
  2. TOMID [TORASEMIDE] [Concomitant]
  3. PORTALAK [LACTULOSE] [Concomitant]
  4. HEPA MERZ [Concomitant]
  5. FALACIN [Concomitant]
  6. EPCLUSA [Suspect]
     Active Substance: SOFOSBUVIR\VELPATASVIR
     Indication: PRODUCT USED FOR UNKNOWN INDICATION
     Dosage: 1 DOSAGE FORM, QD
     Route: 048
     Dates: start: 20200312, end: 20200321
  7. ALDACTONE [Concomitant]
     Active Substance: SPIRONOLACTONE
  8. PROPRANOLOL [Concomitant]
     Active Substance: PROPRANOLOL HYDROCHLORIDE

REACTIONS (7)
  - Multiple organ dysfunction syndrome [Unknown]
  - Encephalopathy [Not Recovered/Not Resolved]
  - Shock [Unknown]
  - Hypoglycaemia [Not Recovered/Not Resolved]
  - Anuria [Not Recovered/Not Resolved]
  - Renal impairment [Not Recovered/Not Resolved]
  - Death [Fatal]

NARRATIVE: CASE EVENT DATE: 20200321
